FAERS Safety Report 24667286 (Version 5)
Quarter: 2025Q2

REPORT INFORMATION
  Report Type: Spontaneous
  Country: CA (occurrence: CA)
  Receive Date: 20241126
  Receipt Date: 20250515
  Transmission Date: 20250716
  Serious: Yes (Hospitalization, Other)
  Sender: BIOMARIN
  Company Number: CA-SA-2024SA329862

PATIENT

DRUGS (2)
  1. LARONIDASE [Suspect]
     Active Substance: LARONIDASE
     Indication: Mucopolysaccharidosis I
     Dosage: 55.1 MG, QW
     Route: 042
     Dates: start: 20101209, end: 20241106
  2. LARONIDASE [Suspect]
     Active Substance: LARONIDASE
     Dosage: 55.1 MG, QW
     Route: 042
     Dates: start: 20241222

REACTIONS (14)
  - Respiration abnormal [Unknown]
  - Fluid retention [Unknown]
  - Peripheral swelling [Unknown]
  - Condition aggravated [Unknown]
  - Abdominal distension [Unknown]
  - Condition aggravated [Unknown]
  - Endotracheal intubation complication [Unknown]
  - Vocal cord disorder [Unknown]
  - Cardiac operation [Recovering/Resolving]
  - Mitral valve repair [Unknown]
  - Upper-airway cough syndrome [Not Recovered/Not Resolved]
  - Cough [Not Recovered/Not Resolved]
  - Cough [Not Recovered/Not Resolved]
  - Carpal tunnel syndrome [Unknown]

NARRATIVE: CASE EVENT DATE: 20241101
